FAERS Safety Report 7831607-7 (Version None)
Quarter: 2011Q4

REPORT INFORMATION
  Report Type: 
  Country: None (occurrence: None)
  Receive Date: 20111021
  Receipt Date: 20111017
  Transmission Date: 20120403
  Serious: Yes (Other)
  Sender: FDA-Public Use
  Company Number: PHHY2011TW92108

PATIENT
  Sex: Female
  Weight: 82 kg

DRUGS (2)
  1. ZOLEDRONIC [Suspect]
     Indication: METASTASES TO BONE
     Dosage: 4 MG EVERY 4 WEEKS
     Route: 042
     Dates: start: 20100208, end: 20110905
  2. LETROZOLE [Concomitant]
     Indication: BREAST CANCER
     Dosage: 2.5 MG PER DAY
     Dates: start: 20101221

REACTIONS (8)
  - OSTEOMYELITIS [None]
  - PURULENT DISCHARGE [None]
  - ABSCESS ORAL [None]
  - PRIMARY SEQUESTRUM [None]
  - ORAL PAIN [None]
  - OSTEONECROSIS OF JAW [None]
  - CELLULITIS [None]
  - BONE DENSITY INCREASED [None]
